FAERS Safety Report 8325322-3 (Version None)
Quarter: 2012Q2

REPORT INFORMATION
  Report Type: 
  Country: None (occurrence: None)
  Receive Date: 20120501
  Receipt Date: 20120426
  Transmission Date: 20120825
  Serious: Yes (Hospitalization, Other)
  Sender: FDA-Public Use
  Company Number: FR-JNJFOC-20111209056

PATIENT
  Sex: Male

DRUGS (1)
  1. ZYTIGA [Suspect]
     Indication: PROSTATE CANCER
     Route: 048
     Dates: start: 20110914, end: 20111112

REACTIONS (3)
  - ARRHYTHMIA [None]
  - CARDIAC ARREST [None]
  - HYPOKALAEMIA [None]
